FAERS Safety Report 5874588-8 (Version None)
Quarter: 2008Q3

REPORT INFORMATION
  Report Type: 
  Country: None (occurrence: None)
  Receive Date: 20080905
  Receipt Date: 20080905
  Transmission Date: 20090109
  Serious: Yes (Life-Threatening, Hospitalization)
  Sender: FDA-Public Use
  Company Number: None

PATIENT
  Age: 54 Year
  Sex: Male
  Weight: 101.6 kg

DRUGS (2)
  1. AMLODIPINE [Suspect]
     Indication: INTENTIONAL OVERDOSE
     Dosage: 225 MG ONCE PO
     Route: 048
     Dates: start: 20080818, end: 20080818
  2. METOPROLOL [Suspect]
     Dosage: 1000 MG ONCE PO
     Route: 048
     Dates: start: 20080818, end: 20080818

REACTIONS (7)
  - ATRIOVENTRICULAR BLOCK COMPLETE [None]
  - BRADYCARDIA [None]
  - MULTIPLE DRUG OVERDOSE INTENTIONAL [None]
  - MUSCLE SPASMS [None]
  - NAUSEA [None]
  - PAIN IN EXTREMITY [None]
  - VOMITING [None]
